FAERS Safety Report 7577460-0 (Version None)
Quarter: 2011Q2

REPORT INFORMATION
  Report Type: 
  Country: None (occurrence: None)
  Receive Date: 20110628
  Receipt Date: 20110614
  Transmission Date: 20111010
  Serious: Yes (Other)
  Sender: FDA-Public Use
  Company Number: CA-JNJFOC-20110607145

PATIENT
  Sex: Male

DRUGS (3)
  1. REMICADE [Suspect]
     Indication: COLITIS ULCERATIVE
     Route: 042
  2. SINGULAIR [Concomitant]
  3. VENTOLIN HFA [Concomitant]

REACTIONS (6)
  - ASPIRATION [None]
  - CONTUSION [None]
  - FALL [None]
  - WHEEZING [None]
  - LOSS OF CONSCIOUSNESS [None]
  - COUGH [None]
